FAERS Safety Report 17675508 (Version 1)
Quarter: 2020Q2

REPORT INFORMATION
  Report Type: Spontaneous
  Country: US (occurrence: US)
  Receive Date: 20200416
  Receipt Date: 20200416
  Transmission Date: 20200714
  Serious: No
  Sender: FDA-Public Use
  Company Number: US-SUNOVION-2020SUN001149

PATIENT
  Age: 23 Year
  Sex: Female

DRUGS (2)
  1. LATUDA [Suspect]
     Active Substance: LURASIDONE HYDROCHLORIDE
     Dosage: INCREASED TO 60 MG, QD
     Route: 048
     Dates: start: 2020
  2. LATUDA [Suspect]
     Active Substance: LURASIDONE HYDROCHLORIDE
     Dosage: UNK
     Route: 048
     Dates: start: 202001

REACTIONS (4)
  - Rash pruritic [Unknown]
  - Rash [Unknown]
  - Dermatitis contact [Unknown]
  - Swollen tongue [Unknown]
